FAERS Safety Report 10556473 (Version 3)
Quarter: 2015Q1

REPORT INFORMATION
  Report Type: Spontaneous
  Country: DE (occurrence: DE)
  Receive Date: 20141031
  Receipt Date: 20150106
  Transmission Date: 20150720
  Serious: Yes (Hospitalization)
  Sender: FDA-Public Use
  Company Number: DE-ROCHE-1483750

PATIENT
  Age: 61 Year
  Sex: Male

DRUGS (19)
  1. XOLAIR [Suspect]
     Active Substance: OMALIZUMAB
     Indication: ASTHMA
     Dosage: 150 MG OR 300 MG
     Route: 058
     Dates: start: 200803
  2. MARCUMAR [Concomitant]
     Active Substance: PHENPROCOUMON
  3. APSOMOL [Concomitant]
     Active Substance: ALBUTEROL
  4. XOLAIR [Suspect]
     Active Substance: OMALIZUMAB
     Dosage: 150 MG OR 300 MG
     Route: 058
     Dates: start: 201003
  5. XOLAIR [Suspect]
     Active Substance: OMALIZUMAB
     Dosage: 150 MG OR 300 MG,
     Route: 058
     Dates: start: 200804, end: 200804
  6. XOLAIR [Suspect]
     Active Substance: OMALIZUMAB
     Dosage: 150 MG OR 300 MG
     Route: 058
     Dates: start: 201203
  7. XOLAIR [Suspect]
     Active Substance: OMALIZUMAB
     Dosage: 150 MG OR 300 MG
     Route: 058
     Dates: start: 201403, end: 201403
  8. THEOPHYLLIN [Concomitant]
     Active Substance: THEOPHYLLINE ANHYDROUS
  9. XOLAIR [Suspect]
     Active Substance: OMALIZUMAB
     Dosage: 150 MG OR 300 MG
     Route: 058
     Dates: start: 200905, end: 200905
  10. URBASON [Concomitant]
     Active Substance: METHYLPREDNISOLONE
     Route: 065
  11. XOLAIR [Suspect]
     Active Substance: OMALIZUMAB
     Dosage: 150 MG OR 300 MG
     Route: 058
     Dates: start: 201004, end: 201004
  12. XOLAIR [Suspect]
     Active Substance: OMALIZUMAB
     Dosage: 150 MG OR 300 MG
     Route: 058
     Dates: start: 201104, end: 201104
  13. XOLAIR [Suspect]
     Active Substance: OMALIZUMAB
     Dosage: 150 MG OR 300 MG
     Route: 058
     Dates: start: 201304, end: 201304
  14. VIANI FORTE [Concomitant]
     Active Substance: FLUTICASONE PROPIONATE\SALMETEROL XINAFOATE
  15. XOLAIR [Suspect]
     Active Substance: OMALIZUMAB
     Dosage: 150 MG OR 300 MG
     Route: 058
     Dates: start: 200903
  16. XOLAIR [Suspect]
     Active Substance: OMALIZUMAB
     Dosage: 150 MG OR 300 MG
     Route: 058
     Dates: start: 201103
  17. XOLAIR [Suspect]
     Active Substance: OMALIZUMAB
     Dosage: 150 MG OR 300 MG
     Route: 058
     Dates: start: 201205, end: 201205
  18. XOLAIR [Suspect]
     Active Substance: OMALIZUMAB
     Dosage: 150 MG OR 300 MG
     Route: 058
     Dates: start: 201303
  19. XOLAIR [Suspect]
     Active Substance: OMALIZUMAB
     Dosage: 150 MG OR 300 MG
     Route: 058
     Dates: start: 201404

REACTIONS (3)
  - Alveolitis allergic [Not Recovered/Not Resolved]
  - Back pain [Unknown]
  - Dyspnoea exertional [Unknown]

NARRATIVE: CASE EVENT DATE: 20140926
